FAERS Safety Report 8369078-7 (Version None)
Quarter: 2012Q2

REPORT INFORMATION
  Report Type: 
  Country: None (occurrence: None)
  Receive Date: 20120516
  Receipt Date: 20120516
  Transmission Date: 20120825
  Serious: Yes (Hospitalization)
  Sender: FDA-Public Use
  Company Number: None

PATIENT
  Age: 62 Year
  Sex: Female
  Weight: 99.7913 kg

DRUGS (2)
  1. LISINOPRIL AND HYDROCHLOROTHIAZIDE [Suspect]
  2. CELEBREX [Suspect]

REACTIONS (4)
  - PRURITUS [None]
  - ANGIOEDEMA [None]
  - SWELLING [None]
  - SWOLLEN TONGUE [None]
